FAERS Safety Report 19814544 (Version 1)
Quarter: 2021Q3

REPORT INFORMATION
  Report Type: Spontaneous
  Country: US (occurrence: US)
  Receive Date: 20210910
  Receipt Date: 20210910
  Transmission Date: 20211014
  Serious: Yes (Other)
  Sender: FDA-Public Use
  Company Number: None

PATIENT
  Age: 22 Year
  Sex: Male
  Weight: 75.15 kg

DRUGS (5)
  1. BENADRYL [Concomitant]
     Active Substance: DIPHENHYDRAMINE HYDROCHLORIDE
  2. BIOTIN [Concomitant]
     Active Substance: BIOTIN
  3. VITAMIN B C D [Concomitant]
  4. MULTIVITAMIN [Concomitant]
     Active Substance: VITAMINS
  5. RISPERIDONE INJECTION [Suspect]
     Active Substance: RISPERIDONE
     Indication: SCHIZOPHRENIA
     Dates: start: 20210909

REACTIONS (9)
  - Confusional state [None]
  - Muscle spasms [None]
  - Blood pressure increased [None]
  - Heart rate increased [None]
  - Facial spasm [None]
  - Joint stiffness [None]
  - Anxiety [None]
  - Hyperhidrosis [None]
  - Feeling abnormal [None]

NARRATIVE: CASE EVENT DATE: 20210909
